FAERS Safety Report 4538108-2 (Version None)
Quarter: 2004Q4

REPORT INFORMATION
  Report Type: 
  Country: None (occurrence: None)
  Receive Date: 20041227
  Receipt Date: 20041217
  Transmission Date: 20050328
  Serious: Yes (Hospitalization)
  Sender: FDA-Public Use
  Company Number: BE-BRISTOL-MYERS SQUIBB COMPANY-12798294

PATIENT
  Age: 56 Year
  Sex: Male
  Weight: 76 kg

DRUGS (7)
  1. REYATAZ [Suspect]
     Indication: HIV INFECTION
     Route: 048
     Dates: start: 20040910
  2. NORVIR [Concomitant]
     Route: 048
     Dates: start: 20040910
  3. VIREAD [Concomitant]
     Route: 048
     Dates: start: 20040910
  4. VIDEX [Concomitant]
     Route: 048
     Dates: start: 20040910
  5. BACTRIM DS [Concomitant]
     Route: 048
     Dates: start: 20031008
  6. GLUCOPHAGE [Concomitant]
     Route: 048
     Dates: start: 20031201
  7. MIXTARD HUMAN 70/30 [Concomitant]
     Route: 058
     Dates: start: 19990301

REACTIONS (2)
  - DIABETES MELLITUS INADEQUATE CONTROL [None]
  - TREATMENT NONCOMPLIANCE [None]
